FAERS Safety Report 6041416-X (Version None)
Quarter: 2009Q1

REPORT INFORMATION
  Report Type: 
  Country: None (occurrence: None)
  Receive Date: 20090116
  Receipt Date: 20081013
  Transmission Date: 20090719
  Serious: No
  Sender: FDA-Public Use
  Company Number: US-BRISTOL-MYERS SQUIBB COMPANY-14367833

PATIENT
  Age: 61 Year
  Sex: Female
  Weight: 122 kg

DRUGS (3)
  1. ABILIFY [Suspect]
     Indication: DEPRESSION
  2. ACTOS [Concomitant]
  3. LIPITOR [Concomitant]

REACTIONS (3)
  - DYSPHAGIA [None]
  - MUSCLE TWITCHING [None]
  - TREMOR [None]
